FAERS Safety Report 5475930-2 (Version None)
Quarter: 2007Q4

REPORT INFORMATION
  Report Type: 
  Country: None (occurrence: None)
  Receive Date: 20071003
  Receipt Date: 20070921
  Transmission Date: 20080405
  Serious: Yes (Life-Threatening, Hospitalization, Other)
  Sender: FDA-Public Use
  Company Number: FR-ELI_LILLY_AND_COMPANY-FR200709005395

PATIENT
  Age: 71 Year
  Sex: Male

DRUGS (10)
  1. ALIMTA [Suspect]
     Indication: LUNG ADENOCARCINOMA METASTATIC
     Dosage: 1000 MG, OTHER
     Route: 042
     Dates: start: 20070509, end: 20070509
  2. PARAPLATIN [Concomitant]
     Indication: LUNG ADENOCARCINOMA METASTATIC
     Dosage: 451 MG, OTHER
     Route: 042
     Dates: start: 20070509, end: 20070509
  3. FOLIC ACID [Concomitant]
     Indication: VITAMIN SUPPLEMENTATION
     Dosage: UNK, UNKNOWN
     Route: 065
  4. VITAMIN B-12 [Concomitant]
     Dosage: 1000 U, OTHER
     Route: 065
     Dates: start: 20070427
  5. SOPROL [Concomitant]
     Indication: HYPERTENSION
     Dosage: 10 MG, DAILY (1/D)
     Route: 048
  6. SKENAN [Concomitant]
     Indication: PAIN
     Dosage: 80 MG, DAILY (1/D)
     Route: 048
     Dates: start: 20070401
  7. NEURONTIN [Concomitant]
     Indication: PAIN
     Dosage: 800 MG, DAILY (1/D)
     Route: 048
     Dates: start: 20070401
  8. OMEPRAZOLE [Concomitant]
     Dosage: 20 MG, DAILY (1/D)
     Route: 065
  9. XATRAL LP [Concomitant]
     Dosage: 10 MG, DAILY (1/D)
     Route: 065
  10. MODURETIC 5-50 [Concomitant]
     Dosage: 0.5 D/F, DAILY (1/D)
     Route: 048

REACTIONS (6)
  - ACUTE RESPIRATORY DISTRESS SYNDROME [None]
  - HAEMORRHAGE [None]
  - PANCYTOPENIA [None]
  - RENAL FAILURE ACUTE [None]
  - SEPSIS [None]
  - URAEMIC ENCEPHALOPATHY [None]
